FAERS Safety Report 11356358 (Version 2)
Quarter: 2015Q3

REPORT INFORMATION
  Report Type: Spontaneous
  Country: FR (occurrence: FR)
  Receive Date: 20150807
  Receipt Date: 20150820
  Transmission Date: 20151125
  Serious: Yes (Death, Life-Threatening, Hospitalization, Other)
  Sender: FDA-Public Use
  Company Number: FR-BAXTER-2015BAX042083

PATIENT
  Age: 45 Year
  Sex: Male

DRUGS (13)
  1. PREDNISONE. [Suspect]
     Active Substance: PREDNISONE
     Indication: B-CELL LYMPHOMA
     Dosage: DAY 1 TO DAY 5, MINI-CHVP PROTOCOL
     Route: 065
     Dates: start: 200202, end: 200207
  2. CHLORAMINOPHENE [Suspect]
     Active Substance: CHLORAMBUCIL
     Indication: B-CELL LYMPHOMA
     Dosage: 6 COURSES, COURSE OF 35 DAYS, DAY 20 TO DAY 29
     Route: 048
     Dates: start: 200401, end: 200406
  3. DOXORUBICINE TEVA [Suspect]
     Active Substance: DOXORUBICIN
     Indication: B-CELL LYMPHOMA
     Dosage: DAY 1, MINI-CHVP PROTOCOL
     Route: 042
     Dates: start: 200202, end: 200207
  4. ETOPOSIDE TEVA [Suspect]
     Active Substance: ETOPOSIDE
     Route: 042
     Dates: start: 200401, end: 200406
  5. ROFERON-A [Suspect]
     Active Substance: INTERFERON ALFA-2A
     Indication: B-CELL LYMPHOMA
     Route: 058
     Dates: start: 200202, end: 200207
  6. DOXORUBICINE TEVA [Suspect]
     Active Substance: DOXORUBICIN
     Dosage: 6 COURSES, COURSE OF 35 DAYS, DAY 1 TO DAY 4
     Route: 065
     Dates: start: 200401, end: 200406
  7. ETOPOSIDE TEVA [Suspect]
     Active Substance: ETOPOSIDE
     Indication: B-CELL LYMPHOMA
     Dosage: DAY 1, MINI-CHVP PROTOCOL
     Route: 042
     Dates: start: 200202, end: 200207
  8. ENDOXAN 1000 MG, POUDRE POUR SOLUTION INJECTABLE [Suspect]
     Active Substance: CYCLOPHOSPHAMIDE
     Indication: B-CELL LYMPHOMA
     Dosage: DAY 1, MINI-CHVP PROTOCOL
     Route: 042
     Dates: start: 200202, end: 200207
  9. VINCRISTINE HOSPIRA [Suspect]
     Active Substance: VINCRISTINE
     Indication: B-CELL LYMPHOMA
     Dosage: TOTAL DOSE 0.4 (UNITS NOT REPORTED), 6 COURSES, COURSE OF 35 DAYS, DAY 1 TO DAY 4
     Route: 065
     Dates: start: 200401, end: 200406
  10. ALKERAN [Suspect]
     Active Substance: MELPHALAN
     Indication: BONE MARROW CONDITIONING REGIMEN
     Route: 065
     Dates: start: 20040621
  11. MABTHERA [Suspect]
     Active Substance: RITUXIMAB
     Indication: B-CELL LYMPHOMA
     Dosage: 6 COURSES, COURSE OF 35 DAYS, DAY 1
     Route: 042
     Dates: start: 200401, end: 200406
  12. ALKERAN [Suspect]
     Active Substance: MELPHALAN
     Indication: B-CELL LYMPHOMA
     Route: 065
     Dates: start: 200405
  13. DEXAMETHASONE. [Suspect]
     Active Substance: DEXAMETHASONE
     Indication: B-CELL LYMPHOMA
     Dosage: 6 COURSES, COURSE OF 35 DAYS, DAY 1 TO DAY 4, DAY 9 TO DAY 12, DAY 17 TO DAY 20
     Route: 048
     Dates: start: 200401, end: 200406

REACTIONS (3)
  - Disease progression [Unknown]
  - Acute myeloid leukaemia [Fatal]
  - Leukaemia [Fatal]

NARRATIVE: CASE EVENT DATE: 200304
